FAERS Safety Report 6764443-3 (Version None)
Quarter: 2010Q2

REPORT INFORMATION
  Report Type: 
  Country: None (occurrence: None)
  Receive Date: 20100609
  Receipt Date: 20100303
  Transmission Date: 20101027
  Serious: No
  Sender: FDA-Public Use
  Company Number: 2010005655

PATIENT
  Age: 16 Month
  Sex: Male

DRUGS (1)
  1. CHILDREN'S ZYRTEC ALLERGY [Suspect]
     Indication: DRUG USE FOR UNKNOWN INDICATION
     Dosage: ONE TEASPOON ONCE,ORAL
     Route: 048
     Dates: start: 20100303

REACTIONS (2)
  - IRRITABILITY [None]
  - WRONG DRUG ADMINISTERED [None]
